FAERS Safety Report 12265800 (Version 1)
Quarter: 2016Q2

REPORT INFORMATION
  Report Type: Spontaneous
  Country: IT (occurrence: IT)
  Receive Date: 20160413
  Receipt Date: 20160413
  Transmission Date: 20160815
  Serious: Yes (Hospitalization)
  Sender: FDA-Public Use
  Company Number: IT-JNJFOC-20160409570

PATIENT
  Age: 85 Year
  Sex: Female
  Weight: 75 kg

DRUGS (2)
  1. XARELTO [Suspect]
     Active Substance: RIVAROXABAN
     Indication: ATRIAL FIBRILLATION
     Route: 048
     Dates: start: 20160326, end: 20160326
  2. XARELTO [Suspect]
     Active Substance: RIVAROXABAN
     Indication: CEREBROVASCULAR ACCIDENT PROPHYLAXIS
     Route: 048
     Dates: start: 20160326, end: 20160326

REACTIONS (4)
  - Malaise [Recovered/Resolved with Sequelae]
  - Gastrointestinal haemorrhage [Recovered/Resolved with Sequelae]
  - Anaemia [Recovered/Resolved with Sequelae]
  - Hypotension [Recovered/Resolved with Sequelae]

NARRATIVE: CASE EVENT DATE: 20160326
